FAERS Safety Report 20351283 (Version 1)
Quarter: 2022Q1

REPORT INFORMATION
  Report Type: Spontaneous
  Country: US (occurrence: US)
  Receive Date: 20220119
  Receipt Date: 20220119
  Transmission Date: 20220423
  Serious: No
  Sender: FDA-Public Use
  Company Number: US-MYLANLABS-2022M1001957

PATIENT
  Sex: Female
  Weight: 77.11 kg

DRUGS (11)
  1. POTASSIUM CHLORIDE [Suspect]
     Active Substance: POTASSIUM CHLORIDE
     Indication: Blood potassium decreased
     Dosage: 2 DOSAGE FORM, QD (ONE IN THE MORNING AND ONE AT NIGHT)
     Route: 048
  2. ENALAPRIL [Concomitant]
     Active Substance: ENALAPRIL
     Indication: Blood pressure measurement
     Dosage: 20 MILLIGRAM, QD (ONCE A DAY)
  3. AMLODIPINE BESYLATE [Concomitant]
     Active Substance: AMLODIPINE BESYLATE
     Indication: Blood pressure measurement
     Dosage: 5 MILLIGRAM, QD (ONCE A DAY)
  4. METOPROLOL [Concomitant]
     Active Substance: METOPROLOL
     Indication: Blood pressure measurement
     Dosage: 200 MILLIGRAM, QD (ONCE A DAY)
  5. TRIAMTERENE [Concomitant]
     Active Substance: TRIAMTERENE
     Indication: Diuretic therapy
     Dosage: 37.5 MG/HCTZ 25 MG  QD
  6. ESCITALOPRAM [Concomitant]
     Active Substance: ESCITALOPRAM OXALATE
     Indication: Polyuria
     Dosage: 10 MILLIGRAM, QD (ONCE A DAY)
     Route: 048
  7. CELEBREX [Concomitant]
     Active Substance: CELECOXIB
     Indication: Analgesic therapy
     Dosage: 200 MILLIGRAM, QD (ONCE A DAY)
     Route: 048
  8. GLEEVEC [Concomitant]
     Active Substance: IMATINIB MESYLATE
     Indication: Leukaemia
     Dosage: 400 MILLIGRAM, QD (ONCE A DAY)
  9. IRON [Concomitant]
     Active Substance: IRON
     Dosage: UNK
  10. VITAMIN D [Concomitant]
     Active Substance: VITAMIN D NOS
     Dosage: UNK
  11. SENNA [Concomitant]
     Active Substance: SENNA LEAF\SENNOSIDES\SENNOSIDES A AND B
     Indication: Constipation
     Dosage: UNK

REACTIONS (3)
  - Abdominal discomfort [Unknown]
  - Product residue present [Unknown]
  - Wrong technique in product usage process [Unknown]
